FAERS Safety Report 4462562-8 (Version None)
Quarter: 2004Q3

REPORT INFORMATION
  Report Type: 
  Country: None (occurrence: None)
  Receive Date: 20040924
  Receipt Date: 20040910
  Transmission Date: 20050211
  Serious: Yes (Other)
  Sender: FDA-Public Use
  Company Number: CAN-2002-007719

PATIENT
  Age: 43 Year
  Sex: Female

DRUGS (6)
  1. BETASERON [Suspect]
     Indication: MULTIPLE SCLEROSIS
     Dosage: 8 MIU, EVERY 2D, SUBCUTANEOUS
     Route: 058
     Dates: start: 20020408
  2. SYNTHROID [Concomitant]
  3. ZOLOFT [Concomitant]
  4. LORAZEPAM [Concomitant]
  5. AMITRIPTYLINE HCL [Concomitant]
  6. OXYBUTYN (OXYBUTYNIN HYDROCLORIDE) [Concomitant]

REACTIONS (9)
  - ABDOMINAL PAIN [None]
  - BILIARY TRACT DISORDER [None]
  - COLITIS [None]
  - DECREASED APPETITE [None]
  - GASTROINTESTINAL DISORDER [None]
  - HEPATIC ENZYME INCREASED [None]
  - MASS [None]
  - NAUSEA [None]
  - PANCREATITIS [None]
